FAERS Safety Report 20992330 (Version 3)
Quarter: 2023Q1

REPORT INFORMATION
  Report Type: Spontaneous
  Country: US (occurrence: US)
  Receive Date: 20220622
  Receipt Date: 20230103
  Transmission Date: 20230417
  Serious: No
  Sender: FDA-Public Use
  Company Number: US-PFIZER INC-2020488178

PATIENT
  Age: 77 Year
  Sex: Female
  Weight: 74.83 kg

DRUGS (2)
  1. ARTHROTEC [Suspect]
     Active Substance: DICLOFENAC SODIUM\MISOPROSTOL
     Dosage: UNK, (QUANTITY FOR 90 DAYS: 180)
  2. ARTHROTEC [Suspect]
     Active Substance: DICLOFENAC SODIUM\MISOPROSTOL
     Dosage: 1 DF, 3X/DAY STRENGTH: 75 MG- 200 MCG [IG: 1 TAB BY MOUTH TID]
     Route: 048
     Dates: start: 20221221

REACTIONS (3)
  - Illness [Unknown]
  - Drug ineffective [Unknown]
  - Product prescribing error [Unknown]
